FAERS Safety Report 9350264 (Version 2)
Quarter: 2013Q2

REPORT INFORMATION
  Report Type: Spontaneous
  Country: FR (occurrence: FR)
  Receive Date: 20130617
  Receipt Date: 20130618
  Transmission Date: 20140414
  Serious: Yes (Life-Threatening)
  Sender: FDA-Public Use
  Company Number: FR-ROCHE-1234316

PATIENT
  Age: 58 Year
  Sex: Female

DRUGS (14)
  1. VESANOID [Suspect]
     Indication: ACUTE MYELOID LEUKAEMIA
     Route: 048
     Dates: start: 20130423
  2. VESANOID [Suspect]
     Route: 048
     Dates: start: 20130508, end: 20130515
  3. VESANOID [Suspect]
     Route: 048
     Dates: start: 20130524, end: 20130529
  4. ZELITREX [Concomitant]
     Route: 048
     Dates: start: 20130423
  5. ZYLORIC 300 [Concomitant]
     Route: 048
     Dates: start: 20130423
  6. AMOXICILLINE [Concomitant]
     Route: 048
     Dates: start: 20130423
  7. TAVANIC [Concomitant]
     Route: 048
     Dates: start: 20130423
  8. ESOMEPRAZOLE [Concomitant]
     Route: 048
     Dates: start: 20130423
  9. SERESTA [Concomitant]
     Route: 048
     Dates: start: 20130423
  10. CARBOSYMAG [Concomitant]
  11. PROPRANOLOL [Concomitant]
  12. XANAX [Concomitant]
  13. FLUOXETIN [Concomitant]
  14. EFFERALGAN [Concomitant]

REACTIONS (1)
  - Respiratory distress [Recovering/Resolving]
